FAERS Safety Report 20368124 (Version 2)
Quarter: 2022Q1

REPORT INFORMATION
  Report Type: Spontaneous
  Country: IT (occurrence: IT)
  Receive Date: 20220124
  Receipt Date: 20220209
  Transmission Date: 20220423
  Serious: Yes (Hospitalization, Other)
  Sender: FDA-Public Use
  Company Number: IT-STADA-240528

PATIENT
  Age: 71 Year
  Sex: Female

DRUGS (7)
  1. PIPERACILLIN AND TAZOBACTAM [Suspect]
     Active Substance: PIPERACILLIN SODIUM\TAZOBACTAM SODIUM
     Indication: Antibiotic therapy
     Dosage: 4.5 GRAM, 3 TIMES A DAY
     Route: 065
     Dates: start: 202009, end: 202009
  2. MEROPENEM [Suspect]
     Active Substance: MEROPENEM
     Indication: Antibiotic therapy
     Dosage: 1 GRAM, 3 TIMES A DAY
     Route: 065
     Dates: start: 2020
  3. MEROPENEM [Suspect]
     Active Substance: MEROPENEM
     Indication: Pyrexia
     Dosage: 3 GRAM, ONCE A DAY
     Route: 065
  4. AMPHOTERICIN B [Suspect]
     Active Substance: AMPHOTERICIN B
     Indication: Product used for unknown indication
     Dosage: 3 MILLIGRAM/KILOGRAM, DAILY
     Route: 065
  5. CASPOFUNGIN [Suspect]
     Active Substance: CASPOFUNGIN
     Indication: Antifungal treatment
     Dosage: 70 MILLIGRAM(ONE DAY)
     Route: 065
     Dates: start: 2020
  6. CASPOFUNGIN [Suspect]
     Active Substance: CASPOFUNGIN
     Dosage: 50 MILLIGRAM, DAILY
     Route: 065
  7. CASPOFUNGIN [Suspect]
     Active Substance: CASPOFUNGIN
     Dosage: 70 UNK, ONE DAY
     Route: 065
     Dates: start: 2020

REACTIONS (6)
  - Geotrichum infection [Recovered/Resolved]
  - Pneumonia [Unknown]
  - Fungaemia [Recovered/Resolved]
  - Neutropenia [Recovered/Resolved]
  - Thrombocytopenia [Recovered/Resolved]
  - Fungal infection [Recovered/Resolved]

NARRATIVE: CASE EVENT DATE: 20200101
